FAERS Safety Report 4794616-0 (Version None)
Quarter: 2005Q4

REPORT INFORMATION
  Report Type: 
  Country: None (occurrence: None)
  Receive Date: 20051011
  Receipt Date: 20051003
  Transmission Date: 20060501
  Serious: Yes (Hospitalization)
  Sender: FDA-Public Use
  Company Number: US-MERCK-0510USA02545

PATIENT
  Age: 49 Year
  Sex: Male
  Weight: 114 kg

DRUGS (7)
  1. VIOXX [Suspect]
     Indication: OSTEOARTHRITIS
     Route: 048
     Dates: start: 19990101, end: 20030101
  2. LOPRESSOR [Concomitant]
     Route: 065
  3. MICROZIDE [Concomitant]
     Route: 065
  4. LOTENSIN [Concomitant]
     Route: 065
  5. PLAVIX [Concomitant]
     Route: 065
  6. NEXIUM [Concomitant]
     Route: 065
  7. ASPIRIN [Concomitant]
     Route: 065

REACTIONS (4)
  - ARTERIAL OCCLUSIVE DISEASE [None]
  - DEPRESSION [None]
  - RETINAL DISORDER [None]
  - TRANSIENT ISCHAEMIC ATTACK [None]
